FAERS Safety Report 21174866 (Version 1)
Quarter: 2022Q3

REPORT INFORMATION
  Report Type: Spontaneous
  Country: DE (occurrence: DE)
  Receive Date: 20220805
  Receipt Date: 20220805
  Transmission Date: 20221027
  Serious: No
  Sender: FDA-Public Use
  Company Number: None

PATIENT
  Age: 46 Year
  Sex: Male
  Weight: 80 kg

DRUGS (1)
  1. PREGABALIN [Suspect]
     Active Substance: PREGABALIN
     Indication: Product used for unknown indication
     Dosage: UNK
     Route: 048
     Dates: start: 20211001, end: 20220505

REACTIONS (27)
  - Restlessness [Not Recovered/Not Resolved]
  - Mood swings [Unknown]
  - Pruritus [Not Recovered/Not Resolved]
  - Swelling face [Not Recovered/Not Resolved]
  - Euphoric mood [Not Recovered/Not Resolved]
  - Chest discomfort [Unknown]
  - Sexual dysfunction [Unknown]
  - Confusional state [Not Recovered/Not Resolved]
  - Emotional disorder [Not Recovered/Not Resolved]
  - Swollen tongue [Not Recovered/Not Resolved]
  - Urinary incontinence [Not Recovered/Not Resolved]
  - Taste disorder [Not Recovered/Not Resolved]
  - Abulia [Not Recovered/Not Resolved]
  - Enuresis [Unknown]
  - Drug ineffective [Unknown]
  - Depression [Not Recovered/Not Resolved]
  - Hyperacusis [Not Recovered/Not Resolved]
  - Dysgraphia [Unknown]
  - Anxiety disorder [Not Recovered/Not Resolved]
  - Anger [Not Recovered/Not Resolved]
  - Blister [Not Recovered/Not Resolved]
  - Visual impairment [Not Recovered/Not Resolved]
  - Arthralgia [Not Recovered/Not Resolved]
  - Eye swelling [Not Recovered/Not Resolved]
  - Memory impairment [Not Recovered/Not Resolved]
  - Thinking abnormal [Not Recovered/Not Resolved]
  - Social anxiety disorder [Not Recovered/Not Resolved]

NARRATIVE: CASE EVENT DATE: 20220401
